FAERS Safety Report 13368325 (Version 1)
Quarter: 2017Q1

REPORT INFORMATION
  Report Type: Spontaneous
  Country: US (occurrence: US)
  Receive Date: 20170324
  Receipt Date: 20170324
  Transmission Date: 20170429
  Serious: No
  Sender: FDA-Public Use
  Company Number: US-ASTRAZENECA-2017SE30172

PATIENT
  Sex: Male
  Weight: 97.5 kg

DRUGS (2)
  1. SYMBICORT [Suspect]
     Active Substance: BUDESONIDE\FORMOTEROL FUMARATE DIHYDRATE
     Indication: ASTHMA
     Dosage: 160/4.5MCG, USING TWO INHALATIONS IN THE MORNING ONLY
     Route: 055
  2. SYMBICORT [Suspect]
     Active Substance: BUDESONIDE\FORMOTEROL FUMARATE DIHYDRATE
     Indication: ASTHMA
     Dosage: 160/4.5MCG TWO INHALATIONS TWICE A DAY
     Route: 055

REACTIONS (6)
  - Seasonal allergy [Unknown]
  - Drug dose omission [Unknown]
  - Product quality issue [Unknown]
  - Asthma [Unknown]
  - Product use issue [Unknown]
  - Intentional product misuse [Unknown]
